FAERS Safety Report 16684291 (Version 2)
Quarter: 2019Q3

REPORT INFORMATION
  Report Type: Spontaneous
  Country: US (occurrence: US)
  Receive Date: 20190808
  Receipt Date: 20190814
  Transmission Date: 20191004
  Serious: No
  Sender: FDA-Public Use
  Company Number: US-JNJFOC-20190808925

PATIENT
  Sex: Male
  Weight: 77.18 kg

DRUGS (2)
  1. DURAGESIC [Suspect]
     Active Substance: FENTANYL
     Indication: PAIN
     Route: 062
     Dates: start: 2014
  2. HYDROCODONE [Concomitant]
     Active Substance: HYDROCODONE
     Indication: PAIN
     Route: 065
     Dates: start: 2010

REACTIONS (5)
  - Sinusitis [Unknown]
  - Product dose omission [Unknown]
  - Pain [Unknown]
  - Wrong technique in product usage process [Unknown]
  - Therapy naive [Unknown]
